FAERS Safety Report 6439463-9 (Version None)
Quarter: 2009Q4

REPORT INFORMATION
  Report Type: 
  Country: None (occurrence: None)
  Receive Date: 20091113
  Receipt Date: 20091106
  Transmission Date: 20100525
  Serious: Yes (Hospitalization, Other)
  Sender: FDA-Public Use
  Company Number: US-JNJFOC-20091102648

PATIENT
  Sex: Male
  Weight: 79.38 kg

DRUGS (1)
  1. DURAGESIC-100 [Suspect]
     Indication: SCIATICA
     Route: 062
     Dates: start: 20020101

REACTIONS (4)
  - ABNORMAL LOSS OF WEIGHT [None]
  - GASTRIC CANCER [None]
  - ROAD TRAFFIC ACCIDENT [None]
  - SEDATION [None]
